FAERS Safety Report 5076609-1 (Version None)
Quarter: 2006Q3

REPORT INFORMATION
  Report Type: 
  Country: None (occurrence: None)
  Receive Date: 20060810
  Receipt Date: 20060731
  Transmission Date: 20061208
  Serious: Yes (Hospitalization, Other)
  Sender: FDA-Public Use
  Company Number: US-BRISTOL-MYERS SQUIBB COMPANY-13463161

PATIENT
  Age: 74 Year
  Sex: Female

DRUGS (2)
  1. CISPLATIN [Suspect]
     Indication: VULVAL CANCER
     Dates: start: 20040201
  2. RADIATION THERAPY [Suspect]
     Indication: VULVAL CANCER
     Dosage: 2700 CGY
     Dates: start: 20040201, end: 20040301

REACTIONS (5)
  - OSTEOMYELITIS [None]
  - OSTEONECROSIS [None]
  - RADIATION INJURY [None]
  - VOMITING [None]
  - WOUND INFECTION [None]
